FAERS Safety Report 15597134 (Version 1)
Quarter: 2018Q4

REPORT INFORMATION
  Report Type: Spontaneous
  Country: US (occurrence: US)
  Receive Date: 20181108
  Receipt Date: 20181108
  Transmission Date: 20190205
  Serious: Yes (Disabling)
  Sender: FDA-Public Use
  Company Number: US-BAUSCH-BL-2018-030816

PATIENT
  Sex: Male

DRUGS (1)
  1. XIFAXAN [Suspect]
     Active Substance: RIFAXIMIN
     Indication: HEPATIC ENCEPHALOPATHY
     Route: 065
     Dates: start: 2017

REACTIONS (4)
  - Post procedural complication [Unknown]
  - Inability to afford medication [Unknown]
  - Loss of personal independence in daily activities [Unknown]
  - Insurance issue [Unknown]

NARRATIVE: CASE EVENT DATE: 2018
